FAERS Safety Report 17093028 (Version 3)
Quarter: 2020Q1

REPORT INFORMATION
  Report Type: Spontaneous
  Country: IN (occurrence: IN)
  Receive Date: 20191129
  Receipt Date: 20200114
  Transmission Date: 20200409
  Serious: Yes (Hospitalization, Other)
  Sender: FDA-Public Use
  Company Number: IN-PFIZER INC-2019512167

PATIENT
  Age: 17 Year
  Sex: Female

DRUGS (4)
  1. PREDNISOLONE. [Suspect]
     Active Substance: PREDNISOLONE
     Indication: HYPOACUSIS
     Dosage: 4 MG, 4X/DAY (HIGH DOSE)
     Route: 048
  2. METHYLPREDNISOLONE ACETATE. [Suspect]
     Active Substance: METHYLPREDNISOLONE ACETATE
     Indication: HYPOACUSIS
  3. PREDNISOLONE. [Suspect]
     Active Substance: PREDNISOLONE
     Indication: MYOKYMIA
  4. METHYLPREDNISOLONE ACETATE. [Suspect]
     Active Substance: METHYLPREDNISOLONE ACETATE
     Indication: MYOKYMIA
     Dosage: 1 G, 3X/DAY (FOR THREE DAYS) (INJECTION) (HIGH DOSE)

REACTIONS (5)
  - Amenorrhoea [Unknown]
  - Drug ineffective for unapproved indication [Unknown]
  - Cushing^s syndrome [Unknown]
  - Substance-induced psychotic disorder [Unknown]
  - Off label use [Unknown]
